FAERS Safety Report 5382410-1 (Version None)
Quarter: 2007Q3

REPORT INFORMATION
  Report Type: 
  Country: None (occurrence: None)
  Receive Date: 20070709
  Receipt Date: 20070705
  Transmission Date: 20080115
  Serious: Yes (Other)
  Sender: FDA-Public Use
  Company Number: US-MERCK-0707USA00031

PATIENT
  Age: 59 Year
  Sex: Male
  Weight: 125 kg

DRUGS (14)
  1. JANUMET [Suspect]
     Indication: BLOOD GLUCOSE
     Route: 048
     Dates: start: 20070607, end: 20070622
  2. LASIX [Concomitant]
     Route: 065
  3. POTASSIUM (UNSPECIFIED) [Concomitant]
     Route: 065
  4. AVALIDE [Concomitant]
     Route: 065
  5. COREG [Concomitant]
     Route: 065
  6. LISINOPRIL [Concomitant]
     Route: 065
  7. ZOLOFT [Concomitant]
     Route: 065
  8. COUMADIN [Concomitant]
     Route: 065
  9. COUMADIN [Concomitant]
     Route: 065
  10. LIPITOR [Concomitant]
     Route: 065
  11. FLONASE [Concomitant]
     Route: 065
  12. ASPIRIN [Concomitant]
     Route: 065
  13. AMBIEN [Concomitant]
     Route: 065
  14. PROTONIX [Concomitant]
     Route: 065

REACTIONS (1)
  - RENAL FAILURE [None]
